FAERS Safety Report 8889919 (Version 1)
Quarter: 2012Q4

REPORT INFORMATION
  Report Type: 
  Country: US (occurrence: US)
  Receive Date: 20121107
  Receipt Date: 20121107
  Transmission Date: 20130627
  Serious: Yes (Death)
  Sender: FDA-Public Use
  Company Number: PHHY2012US101133

PATIENT
  Age: 41 Year

DRUGS (7)
  1. GILENYA [Suspect]
     Indication: MULTIPLE SCLEROSIS
     Dosage: 0.5 mg, QD
     Route: 048
     Dates: start: 201105
  2. BACLOFEN [Concomitant]
  3. MORPHINE [Concomitant]
  4. TRAZODONE [Concomitant]
  5. PROZAC [Concomitant]
  6. VALIUM [Concomitant]
  7. ABILIFY [Concomitant]

REACTIONS (1)
  - Death [Fatal]
